FAERS Safety Report 21070215 (Version 1)
Quarter: 2022Q3

REPORT INFORMATION
  Report Type: Report from Study
  Country: US (occurrence: US)
  Receive Date: 20220712
  Receipt Date: 20220712
  Transmission Date: 20221027
  Serious: Yes (Death, Hospitalization)
  Sender: FDA-Public Use
  Company Number: US-BIOGEN-2022BI01100924

PATIENT
  Age: 30 Year
  Sex: Female
  Weight: 85.806 kg

DRUGS (1)
  1. VUMERITY [Suspect]
     Active Substance: DIROXIMEL FUMARATE
     Indication: Multiple sclerosis
     Route: 050
     Dates: start: 202112, end: 202112

REACTIONS (3)
  - Death [Fatal]
  - Tumefactive multiple sclerosis [Unknown]
  - Relapsing-remitting multiple sclerosis [Unknown]

NARRATIVE: CASE EVENT DATE: 20220412
